FAERS Safety Report 15622401 (Version 1)
Quarter: 2018Q4

REPORT INFORMATION
  Report Type: Spontaneous
  Country: US (occurrence: US)
  Receive Date: 20181115
  Receipt Date: 20181115
  Transmission Date: 20190205
  Serious: Yes (Other)
  Sender: FDA-Public Use
  Company Number: US-BAYER-2018-210941

PATIENT
  Age: 24 Year
  Sex: Female

DRUGS (1)
  1. MIRENA [Suspect]
     Active Substance: LEVONORGESTREL
     Dosage: 20 MCG/24HR, CONT
     Route: 015
     Dates: start: 20150305, end: 20170629

REACTIONS (13)
  - Weight increased [None]
  - Headache [None]
  - Vision blurred [None]
  - Loss of consciousness [None]
  - Dizziness [None]
  - Idiopathic intracranial hypertension [None]
  - Tunnel vision [None]
  - Nausea [None]
  - Neck pain [None]
  - Diplopia [None]
  - Vitreous floaters [None]
  - Musculoskeletal pain [None]
  - Back pain [None]
